FAERS Safety Report 9904285 (Version 3)
Quarter: 2014Q2

REPORT INFORMATION
  Report Type: Report from Study
  Country: JP (occurrence: JP)
  Receive Date: 20140218
  Receipt Date: 20140423
  Transmission Date: 20141212
  Serious: Yes (Other)
  Sender: FDA-Public Use
  Company Number: JP-SA-2014SA017601

PATIENT
  Age: 38 Year
  Sex: Female
  Weight: 78 kg

DRUGS (5)
  1. CLEXANE [Suspect]
     Indication: THROMBOSIS PROPHYLAXIS
     Route: 058
     Dates: start: 20120214, end: 20120218
  2. MAGMITT [Suspect]
     Indication: CONSTIPATION
     Route: 048
     Dates: start: 20120216, end: 20120219
  3. MEIACT [Suspect]
     Indication: POST PROCEDURAL INFECTION
     Route: 048
     Dates: start: 20120216, end: 20120219
  4. FLUMARIN [Concomitant]
     Indication: INFECTION PROPHYLAXIS
     Route: 042
     Dates: start: 20120213, end: 20120214
  5. CALONAL [Concomitant]
     Indication: PROCEDURAL PAIN
     Route: 048
     Dates: start: 20120213, end: 20120213

REACTIONS (1)
  - Leukopenia [Recovered/Resolved]
